FAERS Safety Report 5145627-7 (Version None)
Quarter: 2006Q4

REPORT INFORMATION
  Report Type: 
  Country: None (occurrence: None)
  Receive Date: 20061102
  Receipt Date: 20061020
  Transmission Date: 20070319
  Serious: Yes (Hospitalization, Other)
  Sender: FDA-Public Use
  Company Number: 2006119244

PATIENT
  Sex: Male

DRUGS (3)
  1. NICOTINE [Suspect]
     Dosage: TRANSDERMAL
     Route: 062
  2. NICORETTE [Suspect]
     Indication: SMOKING CESSATION THERAPY
     Dosage: ORAL
     Route: 048
     Dates: start: 20010101, end: 20060901
  3. ATORVASTATIN CALCIUM [Concomitant]

REACTIONS (5)
  - AORTIC WALL HYPERTROPHY [None]
  - BLOOD CHOLESTEROL INCREASED [None]
  - CARDIAC FAILURE [None]
  - DRUG DEPENDENCE [None]
  - INCORRECT DOSE ADMINISTERED [None]
